FAERS Safety Report 8602016-8 (Version None)
Quarter: 2012Q3

REPORT INFORMATION
  Report Type: 
  Country: None (occurrence: None)
  Receive Date: 20120817
  Receipt Date: 20120810
  Transmission Date: 20120928
  Serious: Yes (Hospitalization, Other)
  Sender: FDA-Public Use
  Company Number: BR-PFIZER INC-2012195430

PATIENT
  Age: 80 Year
  Sex: Male
  Weight: 73 kg

DRUGS (7)
  1. CRESTOR [Concomitant]
     Indication: CAROTID ARTERY DISEASE
     Dosage: UNK
     Dates: start: 20040101
  2. DIOVAN [Concomitant]
     Indication: PERIPHERAL VASCULAR DISORDER
     Dosage: 320 MG, 1X/DAY
  3. ATENOLOL [Concomitant]
     Indication: BLOOD PRESSURE INCREASED
     Dosage: ONE TABLET, ONCE DAILY
     Dates: start: 19960101
  4. LYRICA [Suspect]
     Indication: BACK PAIN
     Dosage: 75 MG, 2X/DAY
     Route: 048
     Dates: start: 20120701
  5. CLOPIDOGREL [Concomitant]
     Indication: CARDIAC DISORDER
     Dosage: UNK
     Dates: start: 20070101
  6. LATANOPROST [Concomitant]
     Indication: GLAUCOMA
     Dosage: ONE DROP IN EACH EYE, ONCE DAILY
     Dates: start: 20000101
  7. NIMODIPINE [Concomitant]
     Indication: VENOUS OCCLUSION
     Dosage: ONE TABLET TWICE DAILY
     Dates: start: 20070101

REACTIONS (2)
  - BACK DISORDER [None]
  - BACK PAIN [None]
